FAERS Safety Report 24706387 (Version 2)
Quarter: 2025Q1

REPORT INFORMATION
  Report Type: Spontaneous
  Country: CA (occurrence: CA)
  Receive Date: 20241206
  Receipt Date: 20250114
  Transmission Date: 20250409
  Serious: Yes (Death)
  Sender: PFIZER
  Company Number: CA-PFIZER INC-202400317736

PATIENT
  Age: 78 Year
  Sex: Female

DRUGS (1)
  1. ABRILADA [Suspect]
     Active Substance: ADALIMUMAB-AFZB
     Indication: Hidradenitis
     Dosage: 40 MG, WEEKLY
     Route: 058
     Dates: start: 20221227

REACTIONS (1)
  - Death [Fatal]
